FAERS Safety Report 8080231-2 (Version None)
Quarter: 2012Q1

REPORT INFORMATION
  Report Type: 
  Country: None (occurrence: None)
  Receive Date: 20120127
  Receipt Date: 20110223
  Transmission Date: 20120608
  Serious: No
  Sender: FDA-Public Use
  Company Number: US-ABBOTT-11P-163-0707772-00

PATIENT
  Sex: Female
  Weight: 74.91 kg

DRUGS (14)
  1. HUMIRA [Suspect]
     Indication: RHEUMATOID ARTHRITIS
     Dates: start: 20110217
  2. MULTI-VITAMIN [Concomitant]
     Indication: VITAMIN SUPPLEMENTATION
  3. FLEXERIL [Concomitant]
     Indication: INSOMNIA
  4. ARAVA [Concomitant]
     Indication: RHEUMATOID ARTHRITIS
  5. CALCIUM [Concomitant]
     Indication: MINERAL SUPPLEMENTATION
  6. FLEXERIL [Concomitant]
     Indication: FIBROMYALGIA
  7. LEVOTHYROXINE SODIUM [Concomitant]
     Indication: THYROIDECTOMY
  8. LEVOTHYROXINE SODIUM [Concomitant]
     Indication: THYROID MASS
  9. SIMVASTATIN [Concomitant]
     Indication: BLOOD CHOLESTEROL INCREASED
  10. SAVELLA [Concomitant]
     Indication: FIBROMYALGIA
  11. OPTI GOLD WITH LUTEIN [Concomitant]
     Indication: SUPPLEMENTATION THERAPY
  12. PROGESTERONE [Concomitant]
     Indication: HORMONE REPLACEMENT THERAPY
  13. VITAMIN D [Concomitant]
     Indication: VITAMIN SUPPLEMENTATION
  14. ESTROSORB [Concomitant]
     Indication: OESTROGEN REPLACEMENT THERAPY

REACTIONS (3)
  - HOT FLUSH [None]
  - ERYTHEMA [None]
  - RASH [None]
